FAERS Safety Report 12929222 (Version 1)
Quarter: 2016Q4

REPORT INFORMATION
  Report Type: Spontaneous
  Country: CN (occurrence: CN)
  Receive Date: 20161110
  Receipt Date: 20161110
  Transmission Date: 20170207
  Serious: Yes (Other)
  Sender: FDA-Public Use
  Company Number: CN-PFIZER INC-2016520366

PATIENT
  Age: 61 Year
  Sex: Male

DRUGS (8)
  1. AMINO ACIDS NOS W/NUCLEOTIDES NOS/POLYPEPTIDE [Concomitant]
     Indication: NUTRITIONAL SUPPLEMENTATION
     Dosage: 10 ML, DAILY
     Route: 041
     Dates: start: 20160717
  2. LIPITOR [Suspect]
     Active Substance: ATORVASTATIN CALCIUM
     Indication: HYPERLIPIDAEMIA
     Dosage: 40 MG, 1X/DAY
     Route: 048
     Dates: start: 20160717, end: 20160726
  3. OZAGREL SODIUM [Concomitant]
     Active Substance: OZAGREL SODIUM
     Indication: PLATELET AGGREGATION INHIBITION
     Dosage: 80 MG, 2X/DAY
     Route: 041
     Dates: start: 20160717
  4. MANNITOL. [Concomitant]
     Active Substance: MANNITOL
     Indication: DIURETIC THERAPY
     Dosage: 125 ML, 3X/DAY (Q8H)
     Dates: start: 20160717
  5. VINPOCETINE [Concomitant]
     Active Substance: VINPOCETINE
     Indication: CEREBRAL HYPOPERFUSION
     Dosage: 20 MG, 1X/DAY
     Route: 041
     Dates: start: 20160717
  6. ASPIRIN (E.C.) [Concomitant]
     Active Substance: ASPIRIN
     Dosage: 200 MG, 1X/DAY
     Route: 048
     Dates: start: 20160717
  7. EDARAVONE [Concomitant]
     Active Substance: EDARAVONE
     Indication: ANTIOXIDANT THERAPY
     Dosage: 30 MG, 2X/DAY
     Route: 041
     Dates: start: 20160717
  8. MANNITOL. [Concomitant]
     Active Substance: MANNITOL
     Indication: INTRACRANIAL PRESSURE INCREASED

REACTIONS (2)
  - Blood lactate dehydrogenase increased [Recovering/Resolving]
  - Blood creatine phosphokinase increased [Recovering/Resolving]

NARRATIVE: CASE EVENT DATE: 20160726
